FAERS Safety Report 11489426 (Version 1)
Quarter: 2015Q3

REPORT INFORMATION
  Report Type: Spontaneous
  Country: CH (occurrence: CH)
  Receive Date: 20150910
  Receipt Date: 20150910
  Transmission Date: 20151125
  Serious: Yes (Other)
  Sender: FDA-Public Use
  Company Number: CH-ROCHE-1632494

PATIENT
  Sex: Female

DRUGS (5)
  1. PREDNISONE. [Suspect]
     Active Substance: PREDNISONE
     Indication: PRODUCT USED FOR UNKNOWN INDICATION
     Dosage: RECEIVED MOST RECENT DOSE IN /JUL/2015
     Route: 064
     Dates: start: 20150115
  2. MABTHERA [Suspect]
     Active Substance: RITUXIMAB
     Indication: PRODUCT USED FOR UNKNOWN INDICATION
     Dosage: THE PATIENT^S MOTHER RECEIVED FIRST CYCLE RITUXIMAB 250MG, DAILY FROM 15-16 JANUARY 2015, RECEIVED M
     Route: 064
     Dates: start: 20150115
  3. CYCLOPHOSPHAMIDE. [Suspect]
     Active Substance: CYCLOPHOSPHAMIDE
     Indication: PRODUCT USED FOR UNKNOWN INDICATION
     Dosage: THE PATIENT^S MOTHER RECEIVED CYCLOPHOSPHAMIDE 1500MG ON 18/JAN/2015?RECEIVED MOST RECENT DOSE IN /J
     Route: 064
     Dates: start: 20150115
  4. VINCRISTINE SULFATE. [Suspect]
     Active Substance: VINCRISTINE SULFATE
     Indication: PRODUCT USED FOR UNKNOWN INDICATION
     Dosage: RECEIVED MOST RECENT DOSE IN /JUL/2015
     Route: 064
     Dates: start: 20150115
  5. DOXORUBICIN HYDROCHLORIDE. [Suspect]
     Active Substance: DOXORUBICIN HYDROCHLORIDE
     Indication: PRODUCT USED FOR UNKNOWN INDICATION
     Dosage: THE PATIENT^S MOTHER RECEIVED DOXORUBICIN HYDROCHLORIDE 1500MG ON 18/JAN/2015, RECEIVED MOST RECENT
     Route: 064
     Dates: start: 20150115

REACTIONS (3)
  - Premature baby [Unknown]
  - Foetal exposure during pregnancy [Unknown]
  - Anaemia neonatal [Unknown]

NARRATIVE: CASE EVENT DATE: 20150115
